FAERS Safety Report 15270204 (Version 1)
Quarter: 2018Q3

REPORT INFORMATION
  Report Type: Spontaneous
  Country: DK (occurrence: DK)
  Receive Date: 20180813
  Receipt Date: 20180813
  Transmission Date: 20181010
  Serious: Yes (Other)
  Sender: FDA-Public Use
  Company Number: DK-CONCORDIA PHARMACEUTICALS INC.-E2B_00015975

PATIENT
  Age: 75 Year
  Sex: Female

DRUGS (2)
  1. PREDNISOLONE. [Suspect]
     Active Substance: PREDNISOLONE
     Indication: ADRENOCORTICAL STEROID THERAPY
     Dosage: DOSIS: 25 MG X 1 I 1 M?NED, HEREFTER 20 MG DAGLIGT I 2 UGER HEFTER 15 MG. STYRKE: 25 MG.
     Route: 048
     Dates: start: 20170811, end: 201802
  2. UNIKALK MED D?VITAMIN [Concomitant]
     Indication: SUPPLEMENTATION THERAPY
     Route: 048
     Dates: start: 20170811

REACTIONS (5)
  - Glaucoma [Recovered/Resolved]
  - Fatigue [Unknown]
  - Restlessness [Unknown]
  - Intraocular pressure increased [Recovered/Resolved]
  - Sleep disorder [Unknown]

NARRATIVE: CASE EVENT DATE: 20170828
